FAERS Safety Report 17297853 (Version 1)
Quarter: 2020Q1

REPORT INFORMATION
  Report Type: Spontaneous
  Country: GB (occurrence: GB)
  Receive Date: 20200122
  Receipt Date: 20200122
  Transmission Date: 20200409
  Serious: Yes (Other)
  Sender: FDA-Public Use
  Company Number: GB-TEVA-2020-GB-1171209

PATIENT
  Age: 45 Year
  Sex: Female
  Weight: 81 kg

DRUGS (1)
  1. METHYLPREDNISOLONE. [Suspect]
     Active Substance: METHYLPREDNISOLONE
     Dosage: ONLY HAD 290MG AT TIME OF REACTION. (DOSE: 1 GRAM)
     Route: 041
     Dates: start: 20080102, end: 20080102

REACTIONS (3)
  - Flushing [Recovered/Resolved]
  - Urticaria [Recovered/Resolved]
  - Catheter site related reaction [Recovered/Resolved]

NARRATIVE: CASE EVENT DATE: 20080102
